FAERS Safety Report 4322435-8 (Version None)
Quarter: 2004Q1

REPORT INFORMATION
  Report Type: 
  Country: None (occurrence: None)
  Receive Date: 20040319
  Receipt Date: 20040312
  Transmission Date: 20041129
  Serious: Yes (Life-Threatening, Hospitalization)
  Sender: FDA-Public Use
  Company Number: 2004203564DE

PATIENT
  Age: 42 Year
  Sex: Female
  Weight: 50 kg

DRUGS (2)
  1. FARMORUBICINA (EPIRUBICIN HYDROCHLORIDE) POWDER, STERILE [Suspect]
     Indication: BREAST CANCER
     Dosage: 137 MG, CYCLIC, IV
     Route: 042
     Dates: start: 20040212
  2. CYCLOPHOSPHAMIDE [Suspect]
     Indication: BREAST CANCER
     Dosage: 918 MG, CYCLIC, IV
     Route: 042
     Dates: start: 20040212

REACTIONS (2)
  - FATIGUE [None]
  - LEUKOPENIA [None]
